FAERS Safety Report 7024591-X (Version None)
Quarter: 2010Q4

REPORT INFORMATION
  Report Type: 
  Country: None (occurrence: None)
  Receive Date: 20101001
  Receipt Date: 20100920
  Transmission Date: 20110411
  Serious: Yes (Other)
  Sender: FDA-Public Use
  Company Number: AU-PFIZER INC-2010119845

PATIENT
  Sex: Female

DRUGS (1)
  1. CABERGOLINE [Suspect]

REACTIONS (1)
  - CARDIAC DISORDER [None]
